FAERS Safety Report 5207238-4 (Version None)
Quarter: 2007Q1

REPORT INFORMATION
  Report Type: 
  Country: None (occurrence: None)
  Receive Date: 20070112
  Receipt Date: 20070103
  Transmission Date: 20070707
  Serious: Yes (Death, Other)
  Sender: FDA-Public Use
  Company Number: DE-JNJFOC-20061205786

PATIENT
  Sex: Female
  Weight: 38.3 kg

DRUGS (6)
  1. TOPAMAX [Suspect]
     Indication: EPILEPSY
     Route: 048
  2. DIAZEPAM [Concomitant]
     Route: 048
  3. CLONT [Concomitant]
     Route: 048
  4. METRONIDAZOLE [Concomitant]
     Route: 048
  5. TAVANIC [Concomitant]
     Route: 048
  6. TAVOR [Concomitant]

REACTIONS (4)
  - BRONCHOPNEUMONIA [None]
  - DYSPHAGIA [None]
  - LEUKOPENIA [None]
  - PSEUDOMEMBRANOUS COLITIS [None]
